FAERS Safety Report 14842850 (Version 2)
Quarter: 2018Q2

REPORT INFORMATION
  Report Type: Spontaneous
  Country: CA (occurrence: CA)
  Receive Date: 20180503
  Receipt Date: 20180522
  Transmission Date: 20180711
  Serious: Yes (Hospitalization)
  Sender: FDA-Public Use
  Company Number: CA-BIOMARINAP-CA-2018-118022

PATIENT
  Age: 29 Year
  Sex: Female
  Weight: 84.3 kg

DRUGS (1)
  1. KUVAN [Suspect]
     Active Substance: SAPROPTERIN DIHYDROCHLORIDE
     Indication: PHENYLKETONURIA
     Dosage: 1600 MG, QD
     Route: 048
     Dates: start: 20140326

REACTIONS (8)
  - Disorganised speech [Unknown]
  - Agitation [Unknown]
  - Product label issue [Unknown]
  - Incorrect dose administered [Unknown]
  - Restlessness [Unknown]
  - Accidental overdose [Unknown]
  - Insomnia [Unknown]
  - Mental disorder [Unknown]

NARRATIVE: CASE EVENT DATE: 20180420
